FAERS Safety Report 9819334 (Version 1)
Quarter: 2014Q1

REPORT INFORMATION
  Report Type: Spontaneous
  Country: DE (occurrence: DE)
  Receive Date: 20140115
  Receipt Date: 20140115
  Transmission Date: 20141002
  Serious: Yes (Other)
  Sender: FDA-Public Use
  Company Number: DE-PFIZER INC-2014010815

PATIENT
  Age: 5 Month
  Sex: 0
  Weight: 4.32 kg

DRUGS (1)
  1. VIAGRA [Suspect]
     Dosage: 2 G, 3X/DAY

REACTIONS (2)
  - Pyrexia [Unknown]
  - Off label use [Unknown]
